FAERS Safety Report 10276202 (Version 2)
Quarter: 2014Q3

REPORT INFORMATION
  Report Type: Spontaneous
  Country: FR (occurrence: FR)
  Receive Date: 20140703
  Receipt Date: 20140711
  Transmission Date: 20150326
  Serious: Yes (Hospitalization)
  Sender: FDA-Public Use
  Company Number: FR-VERTEX PHARMACEUTICALS (CANADA)-2014-002959

PATIENT
  Age: 37 Year
  Sex: Male

DRUGS (5)
  1. INCIVO [Suspect]
     Active Substance: TELAPREVIR
     Indication: CHRONIC HEPATITIS C
     Dosage: 2250 MG, QD
     Route: 065
     Dates: start: 20130301, end: 20130531
  2. VICTRELIS [Suspect]
     Active Substance: BOCEPREVIR
     Indication: CHRONIC HEPATITIS C
     Dosage: 2400 MG, UNK
     Route: 065
     Dates: start: 20130318, end: 20130816
  3. PEGASYS [Concomitant]
     Active Substance: PEGINTERFERON ALFA-2A
     Indication: CHRONIC HEPATITIS C
     Dosage: 180 ?G, UNK
     Route: 065
     Dates: start: 20130301, end: 20130816
  4. GRANULOCYTE COLONY STIMULATING FACTOR [Concomitant]
     Active Substance: GRANULOCYTE COLONY-STIMULATING FACTOR NOS
     Indication: NEUTROPENIA
     Dosage: DOSAGE FORM: UNSPECIFIED, DOSE: 300
     Route: 065
     Dates: start: 20140620
  5. COPEGUS [Concomitant]
     Active Substance: RIBAVIRIN
     Indication: CHRONIC HEPATITIS C
     Dosage: 1000 MG, QD
     Route: 065
     Dates: start: 20130301, end: 20130816

REACTIONS (1)
  - Arteriovenous fistula thrombosis [Recovered/Resolved]

NARRATIVE: CASE EVENT DATE: 20130606
